FAERS Safety Report 14109554 (Version 1)
Quarter: 2017Q4

REPORT INFORMATION
  Report Type: Spontaneous
  Country: US (occurrence: US)
  Receive Date: 20171020
  Receipt Date: 20171020
  Transmission Date: 20180321
  Serious: No
  Sender: FDA-Public Use
  Company Number: US-TEVA-725088ACC

PATIENT
  Sex: Male

DRUGS (3)
  1. METFORMIN [Concomitant]
     Active Substance: METFORMIN HYDROCHLORIDE
  2. AMOXICILLIN AND CLAVULANATE POTASSIUM CHEWABLE TABLET S [Suspect]
     Active Substance: AMOXICILLIN\CLAVULANATE POTASSIUM
     Indication: PNEUMONITIS
     Dosage: AMOXICILLIN W/CLAVULANIC ACID : 400/57 MG; DOSE: 2 TABLETS A DAY
     Dates: start: 20161020, end: 201610
  3. CARVEDILOL. [Concomitant]
     Active Substance: CARVEDILOL

REACTIONS (5)
  - Product physical consistency issue [Unknown]
  - Candida infection [Recovered/Resolved]
  - Drug dispensing error [None]
  - Product solubility abnormal [Unknown]
  - Product label confusion [Unknown]

NARRATIVE: CASE EVENT DATE: 201610
